FAERS Safety Report 11628068 (Version 1)
Quarter: 2015Q4

REPORT INFORMATION
  Report Type: Spontaneous
  Country: US (occurrence: None)
  Receive Date: 20151013
  Receipt Date: 20151013
  Transmission Date: 20160304
  Serious: Yes (Hospitalization)
  Sender: FDA-Public Use
  Company Number: None

PATIENT
  Age: 72 Year
  Sex: Male
  Weight: 97.9 kg

DRUGS (2)
  1. ACETAMINOPHEN/OXYCODONE [Suspect]
     Active Substance: ACETAMINOPHEN\OXYCODONE HYDROCHLORIDE
     Indication: PAIN
     Dosage: 7.5/325 MG
     Route: 048
     Dates: start: 20150807, end: 20150809
  2. CYCLOBENZAPRINE [Suspect]
     Active Substance: CYCLOBENZAPRINE
     Indication: PAIN
     Dates: start: 20150807, end: 20150809

REACTIONS (18)
  - Hallucination [None]
  - Fall [None]
  - Constipation [None]
  - Vomiting [None]
  - Hypophagia [None]
  - Retching [None]
  - Confusional state [None]
  - Dizziness [None]
  - Arthropod bite [None]
  - Urinary retention [None]
  - Fluid intake reduced [None]
  - Disorientation [None]
  - Pain [None]
  - Incorrect dose administered [None]
  - Nausea [None]
  - Mental status changes [None]
  - Inappropriate schedule of drug administration [None]
  - Head injury [None]

NARRATIVE: CASE EVENT DATE: 20150809
